FAERS Safety Report 6136186-0 (Version None)
Quarter: 2009Q1

REPORT INFORMATION
  Report Type: 
  Country: None (occurrence: None)
  Receive Date: 20090330
  Receipt Date: 20090302
  Transmission Date: 20090719
  Serious: No
  Sender: FDA-Public Use
  Company Number: US-BAYER-200914415NA

PATIENT
  Age: 41 Year
  Sex: Female

DRUGS (1)
  1. MIRENA [Suspect]
     Indication: DRUG USE FOR UNKNOWN INDICATION
     Dosage: CONTINUOUS
     Route: 015
     Dates: start: 20071201, end: 20090226

REACTIONS (6)
  - CYSTITIS [None]
  - MENORRHAGIA [None]
  - NAUSEA [None]
  - PELVIC PAIN [None]
  - URINARY TRACT INFECTION [None]
  - VULVOVAGINAL MYCOTIC INFECTION [None]
